FAERS Safety Report 7999371-9 (Version None)
Quarter: 2011Q4

REPORT INFORMATION
  Report Type: 
  Country: None (occurrence: None)
  Receive Date: 20111221
  Receipt Date: 20111115
  Transmission Date: 20120403
  Serious: Yes (Other)
  Sender: FDA-Public Use
  Company Number: PHEH2011US009588

PATIENT
  Sex: Female

DRUGS (6)
  1. DIOVAN HCT [Suspect]
     Indication: HYPERTENSION
     Dosage: 320MG VALSARTAN 12.5 MG HCT, UNK
  2. ACTONEL [Concomitant]
     Dosage: 35 MG, QW
  3. DIOVAN [Suspect]
     Indication: HYPERTENSION
     Dosage: 160 MG, QD
  4. DILAUDID [Concomitant]
  5. CRESTOR [Concomitant]
  6. SUCRALFATE [Concomitant]

REACTIONS (9)
  - ANXIETY [None]
  - DRUG ADMINISTRATION ERROR [None]
  - DECREASED INTEREST [None]
  - INJURY [None]
  - RASH [None]
  - SCAR [None]
  - DEFORMITY [None]
  - EMOTIONAL DISORDER [None]
  - INCORRECT DOSE ADMINISTERED [None]
